FAERS Safety Report 5705548-5 (Version None)
Quarter: 2008Q2

REPORT INFORMATION
  Report Type: 
  Country: None (occurrence: None)
  Receive Date: 20080415
  Receipt Date: 20080408
  Transmission Date: 20081010
  Serious: Yes (Death, Hospitalization)
  Sender: FDA-Public Use
  Company Number: US-ROCHE-539516

PATIENT
  Sex: Male
  Weight: 88.8 kg

DRUGS (5)
  1. ROCEPHIN [Suspect]
     Route: 042
     Dates: start: 20071119, end: 20071119
  2. CALCIUM CHLORIDE [Suspect]
     Route: 042
     Dates: start: 20071119, end: 20071119
  3. INSULIN [Concomitant]
     Dates: start: 20071119
  4. SODIUM BICARBONATE INJECTION [Concomitant]
     Route: 042
     Dates: start: 20071119
  5. KAYEXALATE [Concomitant]
     Dates: start: 20071119

REACTIONS (2)
  - DYSPNOEA [None]
  - SEPTIC SHOCK [None]
